FAERS Safety Report 10643289 (Version 1)
Quarter: 2014Q4

REPORT INFORMATION
  Report Type: Spontaneous
  Country: US (occurrence: None)
  Receive Date: 20141121
  Receipt Date: 20141121
  Transmission Date: 20150529
  Serious: Yes (Other)
  Sender: FDA-Public Use
  Company Number: 163-10004-14071337

PATIENT
  Age: 66 Year
  Sex: Female

DRUGS (5)
  1. METHOTREXATE(METHOTREXATE)(TABLETS) [Concomitant]
  2. OTEZLA [Suspect]
     Active Substance: APREMILAST
     Indication: PSORIATIC ARTHROPATHY
     Route: 048
     Dates: start: 20140424, end: 20140623
  3. LIPITOR(ATORVASTATIN)(TABLETS) [Concomitant]
  4. NOVOLIN (INSULIN HUMAN INJECTION, ISOPHANE)(INJECTION) [Concomitant]
  5. LORAZEPAM(LORAZEPAM) [Concomitant]
     Active Substance: LORAZEPAM

REACTIONS (3)
  - Headache [None]
  - Nausea [None]
  - Diarrhoea [None]

NARRATIVE: CASE EVENT DATE: 20140707
